FAERS Safety Report 14086739 (Version 1)
Quarter: 2017Q4

REPORT INFORMATION
  Report Type: Spontaneous
  Country: FR (occurrence: FR)
  Receive Date: 20171013
  Receipt Date: 20171013
  Transmission Date: 20180321
  Serious: Yes (Congenital Anomaly)
  Sender: FDA-Public Use
  Company Number: FR-B.I. PHARMACEUTICALS,INC./RIDGEFIELD-2017-BI-054391

PATIENT
  Sex: Male

DRUGS (4)
  1. LOXEN LP [Suspect]
     Active Substance: NICARDIPINE HYDROCHLORIDE
     Indication: EXPOSURE DURING PREGNANCY
     Route: 064
     Dates: start: 20170813, end: 20170813
  2. CATAPRESSAN [Suspect]
     Active Substance: CLONIDINE
     Indication: EXPOSURE DURING PREGNANCY
     Route: 064
     Dates: start: 20170813, end: 20170813
  3. CALCIUM GLUCONATE. [Suspect]
     Active Substance: CALCIUM GLUCONATE
     Indication: EXPOSURE DURING PREGNANCY
     Route: 064
     Dates: start: 20170813
  4. NOREPINEPHRINE. [Suspect]
     Active Substance: NOREPINEPHRINE
     Indication: EXPOSURE DURING PREGNANCY
     Route: 064
     Dates: start: 20170813, end: 20170815

REACTIONS (3)
  - Limb malformation [Not Recovered/Not Resolved]
  - Foetal exposure during pregnancy [Unknown]
  - Talipes [Not Recovered/Not Resolved]

NARRATIVE: CASE EVENT DATE: 201709
